FAERS Safety Report 15238239 (Version 1)
Quarter: 2018Q3

REPORT INFORMATION
  Report Type: Spontaneous
  Country: TR (occurrence: TR)
  Receive Date: 20180803
  Receipt Date: 20180803
  Transmission Date: 20181010
  Serious: Yes (Death, Congenital Anomaly)
  Sender: FDA-Public Use
  Company Number: TR-TOLMAR, INC.-TOLG20180419

PATIENT
  Sex: Male

DRUGS (3)
  1. BENZODIAZEPINE [Concomitant]
     Active Substance: BENZODIAZEPINE
     Indication: MATERNAL EXPOSURE TIMING UNSPECIFIED
     Dosage: UNKNOWN
     Route: 064
  2. LEVETIRACETAM. [Suspect]
     Active Substance: LEVETIRACETAM
     Indication: MATERNAL EXPOSURE TIMING UNSPECIFIED
     Dosage: 1000 MG
     Route: 064
  3. VALPROIC ACID. [Suspect]
     Active Substance: VALPROIC ACID
     Indication: MATERNAL EXPOSURE TIMING UNSPECIFIED
     Dosage: 1000 MG
     Route: 064

REACTIONS (15)
  - Gastrooesophageal reflux disease [Unknown]
  - Joint contracture [Unknown]
  - Congenital nose malformation [Unknown]
  - Hypertelorism of orbit [Unknown]
  - Foetal exposure during pregnancy [None]
  - Ventricular septal defect [Unknown]
  - Dysmorphism [Unknown]
  - Craniofacial deformity [Unknown]
  - Micrognathia [Unknown]
  - Death [Fatal]
  - Congenital cardiovascular anomaly [Unknown]
  - Hypokinesia neonatal [Unknown]
  - Gastrointestinal malformation [Unknown]
  - Congenital musculoskeletal anomaly [Unknown]
  - Poor sucking reflex [Unknown]
